FAERS Safety Report 7557500-5 (Version None)
Quarter: 2011Q2

REPORT INFORMATION
  Report Type: 
  Country: None (occurrence: None)
  Receive Date: 20110610
  Receipt Date: 20110519
  Transmission Date: 20111010
  Serious: Yes (Other)
  Sender: FDA-Public Use
  Company Number: 20110424

PATIENT
  Age: 26 Year
  Sex: Female

DRUGS (2)
  1. DEXAMETHASONE SODIUM PHOSPHATE [Suspect]
     Indication: LIMB INJURY
     Dosage: IONTOPHORESIS
     Route: 044
     Dates: start: 20100701, end: 20100801
  2. LOTEMAX [Suspect]
     Indication: UVEITIS

REACTIONS (5)
  - NAUSEA [None]
  - HEAD DISCOMFORT [None]
  - VISION BLURRED [None]
  - DIZZINESS [None]
  - CATARACT SUBCAPSULAR [None]
